FAERS Safety Report 7711844-2 (Version None)
Quarter: 2011Q3

REPORT INFORMATION
  Report Type: 
  Country: None (occurrence: None)
  Receive Date: 20110826
  Receipt Date: 20110818
  Transmission Date: 20111222
  Serious: Yes (Other)
  Sender: FDA-Public Use
  Company Number: US-AMGEN-USASP2011042244

PATIENT
  Age: 45 Year
  Sex: Female

DRUGS (1)
  1. ENBREL [Suspect]
     Indication: RHEUMATOID ARTHRITIS
     Dosage: 50 MG, QWK
     Dates: start: 20100801

REACTIONS (11)
  - ANAEMIA [None]
  - STARVATION [None]
  - WEIGHT INCREASED [None]
  - WEIGHT LOSS POOR [None]
  - FATIGUE [None]
  - HYPERSOMNIA [None]
  - DEPRESSION [None]
  - ASTHENIA [None]
  - HEADACHE [None]
  - DIZZINESS [None]
  - POOR QUALITY SLEEP [None]
